FAERS Safety Report 17985331 (Version 1)
Quarter: 2020Q3

REPORT INFORMATION
  Report Type: Spontaneous
  Country: DE (occurrence: DE)
  Receive Date: 20200706
  Receipt Date: 20200706
  Transmission Date: 20201103
  Serious: Yes (Hospitalization)
  Sender: FDA-Public Use
  Company Number: DE-TEVA-2020-DE-1795468

PATIENT
  Age: 93 Year
  Sex: Female

DRUGS (13)
  1. TEMAZEP ?CT 20MG [Suspect]
     Active Substance: TEMAZEPAM
     Dosage: 20 MILLIGRAM DAILY;  0?0?0?1
     Route: 065
  2. TILIDIN RETARD ? 1 A PHARMA [Suspect]
     Active Substance: NALOXONE HYDROCHLORIDE\TILIDINE HYDROCHLORIDE
     Dosage: 2 DOSAGE FORMS DAILY; 4/50 MG, 1?0?0?1
     Route: 065
  3. PREGABIN 25MG [Concomitant]
     Dosage: 25 MG, 1?0?0?1,
  4. INSUMAN BASAL  100I.E./ML SOLOSTAR FERTIGPEN [Concomitant]
     Dosage: 100 IU / ML, 0?0?10?0, PRE?FILLED SYRINGES
  5. TORASEMID?1A PHARMA 10MG [Suspect]
     Active Substance: TORSEMIDE
     Dosage: 10 MILLIGRAM DAILY; 1?0?0?0
     Route: 065
  6. NITRENDIPIN 20?1A PHARMA [Concomitant]
     Dosage: 40 MILLIGRAM DAILY;  1?0?1?0
  7. ASS 100 [Concomitant]
     Active Substance: ASPIRIN
     Dosage: 100 MILLIGRAM DAILY;  0?1?0?0
  8. METOPROLOL ?1A PHARMA 95MG [Concomitant]
     Dosage: 190 MILLIGRAM DAILY;  1?0?1?0
  9. INSULIN ACTRAPHANE 30/70 100 I.E./ML (GE) [Concomitant]
     Dosage: 30 | 70 IU / ML, ACCORDING TO THE SCHEME, PRE?FILLED SYRINGES
  10. SPIRIVA 18 MIKROGRAMM [Concomitant]
     Dosage: 18 MICROGRAM DAILY; 18 ?G, 1?0?0?0, MDI
  11. SIMVASTATIN?1A PHARMA 40MG [Concomitant]
     Dosage: 40 MG, 0?0?0.5?0,
  12. NOVAMINSULFON  500 ?1A PHARMA [Concomitant]
     Dosage: 500 MG, NEED
  13. PANTOPRAZOL?1A PHARMA 40MG [Concomitant]
     Dosage: 80 MILLIGRAM DAILY;  1?0?1?0

REACTIONS (4)
  - Product monitoring error [Recovered/Resolved]
  - General physical health deterioration [Recovered/Resolved]
  - Product prescribing error [Recovered/Resolved]
  - Dizziness [Recovered/Resolved]
